FAERS Safety Report 6317885-4 (Version None)
Quarter: 2009Q3

REPORT INFORMATION
  Report Type: 
  Country: None (occurrence: None)
  Receive Date: 20090820
  Receipt Date: 20090820
  Transmission Date: 20100115
  Serious: Yes (Hospitalization)
  Sender: FDA-Public Use
  Company Number: None

PATIENT
  Sex: Male
  Weight: 97.5234 kg

DRUGS (7)
  1. VIDAZA [Suspect]
     Indication: PROSTATE CANCER
     Dosage: 150 MG IV
     Route: 042
     Dates: start: 20090112
  2. DOCETAXEL [Suspect]
     Indication: PROSTATE CANCER
     Dosage: 75 MG IV
     Route: 042
     Dates: start: 20090112
  3. VYTORIN [Concomitant]
  4. METFORMIN HCL [Concomitant]
  5. LUPORN [Concomitant]
  6. PERCOCET [Concomitant]
  7. PREDNISONE [Concomitant]

REACTIONS (6)
  - ANAEMIA [None]
  - DYSPNOEA [None]
  - FEBRILE NEUTROPENIA [None]
  - GASTROINTESTINAL PAIN [None]
  - HAEMORRHOIDAL HAEMORRHAGE [None]
  - OESOPHAGEAL CANDIDIASIS [None]
